FAERS Safety Report 14232472 (Version 1)
Quarter: 2017Q4

REPORT INFORMATION
  Report Type: Spontaneous
  Country: US (occurrence: US)
  Receive Date: 20171128
  Receipt Date: 20171128
  Transmission Date: 20180321
  Serious: Yes (Hospitalization)
  Sender: FDA-Public Use
  Company Number: US-MYLANLABS-2017M1074575

PATIENT
  Age: 16 Year
  Sex: Male

DRUGS (4)
  1. KETAMINE [Suspect]
     Active Substance: KETAMINE
     Indication: AGGRESSION
     Dosage: 200MG
     Route: 030
  2. KETAMINE [Suspect]
     Active Substance: KETAMINE
     Indication: AGITATION
  3. LORAZEPAM. [Suspect]
     Active Substance: LORAZEPAM
     Indication: AGITATION
  4. LORAZEPAM. [Suspect]
     Active Substance: LORAZEPAM
     Indication: SYMPATHOMIMETIC EFFECT
     Dosage: 2.5MG
     Route: 042

REACTIONS (3)
  - Aggression [Recovered/Resolved]
  - Hypertension [Recovered/Resolved]
  - Sinus tachycardia [Recovered/Resolved]
